FAERS Safety Report 5144517-3 (Version None)
Quarter: 2006Q4

REPORT INFORMATION
  Report Type: 
  Country: None (occurrence: None)
  Receive Date: 20061030
  Receipt Date: 20061020
  Transmission Date: 20070319
  Serious: Yes (Other)
  Sender: FDA-Public Use
  Company Number: 2006128940

PATIENT
  Sex: Female

DRUGS (5)
  1. GEODON [Suspect]
     Indication: BIPOLAR DISORDER
     Dosage: 20 TO 40MG (BID)
  2. GEODON [Suspect]
     Indication: OBSESSIVE-COMPULSIVE DISORDER
     Dosage: 20 TO 40MG (BID)
  3. PROZAC [Suspect]
     Indication: BIPOLAR DISORDER
     Dosage: 60MG (DAILY)
  4. PROZAC [Suspect]
     Indication: OBSESSIVE-COMPULSIVE DISORDER
     Dosage: 60MG (DAILY)
  5. LAMICTAL [Concomitant]

REACTIONS (2)
  - MANIA [None]
  - SEROTONIN SYNDROME [None]
